FAERS Safety Report 8620099-6 (Version None)
Quarter: 2012Q3

REPORT INFORMATION
  Report Type: 
  Country: None (occurrence: None)
  Receive Date: 20120824
  Receipt Date: 20120814
  Transmission Date: 20120928
  Serious: Yes (Death, Other)
  Sender: FDA-Public Use
  Company Number: DE-CELGENEUS-062-21880-12081716

PATIENT

DRUGS (2)
  1. REVLIMID [Suspect]
     Indication: MULTIPLE MYELOMA
     Route: 048
  2. DEXAMETHASONE [Concomitant]
     Indication: MULTIPLE MYELOMA
     Route: 048

REACTIONS (10)
  - PYREXIA [None]
  - MULTIPLE MYELOMA [None]
  - PAIN [None]
  - DEATH [None]
  - SEPSIS [None]
  - EMBOLISM [None]
  - INFECTION [None]
  - CARDIAC FAILURE [None]
  - LEUKAEMIA PLASMACYTIC [None]
  - RASH [None]
